FAERS Safety Report 6840451-9 (Version None)
Quarter: 2010Q3

REPORT INFORMATION
  Report Type: 
  Country: None (occurrence: None)
  Receive Date: 20100714
  Receipt Date: 20100702
  Transmission Date: 20110219
  Serious: Yes (Other)
  Sender: FDA-Public Use
  Company Number: US-PFIZER INC-2010059408

PATIENT
  Sex: Male
  Weight: 79.365 kg

DRUGS (3)
  1. DILANTIN [Suspect]
     Indication: EPILEPSY
     Dosage: 500 MG, DAILY
     Route: 048
     Dates: start: 19990101, end: 20080401
  2. DILANTIN [Suspect]
     Indication: CONVULSION
     Dosage: 400 MG, UNK
  3. DILANTIN [Suspect]
     Dosage: 300 MG, UNK

REACTIONS (21)
  - ARTHRALGIA [None]
  - BLISTER [None]
  - CHEST DISCOMFORT [None]
  - CONFUSIONAL STATE [None]
  - DEPRESSION SUICIDAL [None]
  - DRUG TOXICITY [None]
  - FEELING ABNORMAL [None]
  - GINGIVAL EROSION [None]
  - ILL-DEFINED DISORDER [None]
  - INSOMNIA [None]
  - MAJOR DEPRESSION [None]
  - MUSCLE SPASMS [None]
  - PRURITUS [None]
  - QUALITY OF LIFE DECREASED [None]
  - RASH [None]
  - SCAR [None]
  - SKIN BURNING SENSATION [None]
  - SKIN DISORDER [None]
  - SKIN EXFOLIATION [None]
  - SOMNOLENCE [None]
  - TOOTH EROSION [None]
